FAERS Safety Report 26045554 (Version 1)
Quarter: 2025Q4

REPORT INFORMATION
  Report Type: Spontaneous
  Country: US (occurrence: US)
  Receive Date: 20251114
  Receipt Date: 20251114
  Transmission Date: 20260117
  Serious: No
  Sender: BAUSCH AND LOMB
  Company Number: US-BAUSCHBL-2025BNL031765

PATIENT
  Age: 70 Year
  Sex: Female

DRUGS (1)
  1. MIEBO [Suspect]
     Active Substance: PERFLUOROHEXYLOCTANE
     Indication: Product used for unknown indication
     Dosage: INSTILLS ONE DROP IN EACH EYE FOUR TIMES A DAY

REACTIONS (3)
  - Nausea [Unknown]
  - Sinusitis [Unknown]
  - Product use issue [Unknown]
